FAERS Safety Report 15509721 (Version 2)
Quarter: 2019Q3

REPORT INFORMATION
  Report Type: Spontaneous
  Country: IE (occurrence: IE)
  Receive Date: 20181016
  Receipt Date: 20190717
  Transmission Date: 20191004
  Serious: Yes (Death, Hospitalization, Other)
  Sender: FDA-Public Use
  Company Number: IE-SA-2018SA191083

PATIENT
  Sex: Male

DRUGS (7)
  1. MABCAMPATH [Suspect]
     Active Substance: ALEMTUZUMAB
     Indication: CHRONIC LYMPHOCYTIC LEUKAEMIA REFRACTORY
     Dosage: 30 MG, ON MONDAYS, WEDNESDAYS, AND FRIDAYS
     Route: 042
  2. SEPTRIN [Concomitant]
     Active Substance: SULFAMETHOXAZOLE\TRIMETHOPRIM
     Dosage: UNK
  3. VALACYCLOVIR [Concomitant]
     Active Substance: VALACYCLOVIR HYDROCHLORIDE
     Dosage: UNK
  4. CLARITHROMYCIN. [Concomitant]
     Active Substance: CLARITHROMYCIN
     Indication: COUGH
     Dosage: UNK
  5. CO-AMOXICLAV [AMOXICILLIN;CLAVULANATE POTASSIUM] [Concomitant]
     Active Substance: AMOXICILLIN\CLAVULANATE POTASSIUM
     Indication: COUGH
     Dosage: UNK
  6. MABCAMPATH [Suspect]
     Active Substance: ALEMTUZUMAB
     Dosage: THREE TIMES A WEEK WITH TWO DOSES ON CONSECUTIVE DAYS
  7. GANCICLOVIR. [Concomitant]
     Active Substance: GANCICLOVIR
     Dosage: UNK

REACTIONS (6)
  - Thrombocytopenia [Fatal]
  - Cerebral haemorrhage [Fatal]
  - Cytopenia [Not Recovered/Not Resolved]
  - Drug hypersensitivity [Recovering/Resolving]
  - Mucosal haemorrhage [Fatal]
  - Gastrointestinal haemorrhage [Fatal]
